FAERS Safety Report 5893022-5 (Version None)
Quarter: 2008Q3

REPORT INFORMATION
  Report Type: 
  Country: None (occurrence: None)
  Receive Date: 20080923
  Receipt Date: 20070410
  Transmission Date: 20090109
  Serious: No
  Sender: FDA-Public Use
  Company Number: US-ASTRAZENECA-2007UW02061

PATIENT
  Age: 357 Month
  Sex: Male
  Weight: 113.6 kg

DRUGS (10)
  1. SEROQUEL [Suspect]
     Indication: NIGHTMARE
     Dosage: 25 MG TO 300 MG
     Route: 048
     Dates: start: 19990401
  2. SEROQUEL [Suspect]
     Indication: SCHIZOPHRENIA
     Dosage: 25 MG TO 300 MG
     Route: 048
     Dates: start: 19990401
  3. HALDOL [Concomitant]
     Dates: start: 19980401, end: 20060701
  4. NAVANE [Concomitant]
     Dates: start: 19961201, end: 19970101
  5. RISPERDAL [Concomitant]
     Dates: start: 19970901, end: 20060701
  6. THORAZINE [Concomitant]
     Dates: start: 19961201
  7. ZYPREXA [Concomitant]
     Dates: start: 19980401, end: 20060701
  8. DEPAKOTE [Concomitant]
     Dates: start: 19990501, end: 20060701
  9. MELLARIL [Concomitant]
     Dates: start: 19970601, end: 19980401
  10. PROLIXIN [Concomitant]
     Dates: start: 20050101

REACTIONS (6)
  - BLISTER [None]
  - DIARRHOEA [None]
  - HEADACHE [None]
  - NAUSEA [None]
  - STRESS [None]
  - TYPE 2 DIABETES MELLITUS [None]
